FAERS Safety Report 8081237-X (Version None)
Quarter: 2012Q1

REPORT INFORMATION
  Report Type: 
  Country: None (occurrence: None)
  Receive Date: 20120130
  Receipt Date: 20120119
  Transmission Date: 20120608
  Serious: Yes (Hospitalization)
  Sender: FDA-Public Use
  Company Number: FR-SANOFI-AVENTIS-2012SA003977

PATIENT
  Age: 44 Year
  Sex: Female

DRUGS (6)
  1. AUGMENTIN '125' [Suspect]
     Route: 065
     Dates: start: 20111212, end: 20111215
  2. COUMADIN [Suspect]
     Route: 048
     Dates: start: 20111212, end: 20111214
  3. MIGRALGINE [Suspect]
     Route: 065
     Dates: start: 20111201, end: 20111201
  4. ASPIRIN [Suspect]
     Route: 065
     Dates: end: 20111201
  5. LOVENOX [Suspect]
     Route: 051
     Dates: start: 20111201, end: 20111201
  6. ACETAMINOPHEN [Suspect]
     Route: 065
     Dates: end: 20111211

REACTIONS (1)
  - CYTOLYTIC HEPATITIS [None]
